FAERS Safety Report 8114553-3 (Version None)
Quarter: 2012Q1

REPORT INFORMATION
  Report Type: 
  Country: None (occurrence: None)
  Receive Date: 20120206
  Receipt Date: 20120201
  Transmission Date: 20120608
  Serious: No
  Sender: FDA-Public Use
  Company Number: US-PFIZER INC-2012028519

PATIENT
  Sex: Male
  Weight: 95.238 kg

DRUGS (8)
  1. VIAGRA [Suspect]
     Dosage: UNK
     Route: 048
  2. INSULIN [Concomitant]
     Indication: DIABETES MELLITUS
     Dosage: 40 IU IN THE MORNING AND 35 IU IN THE EVENING, 2X/DAY
  3. ZESTRIL [Interacting]
     Indication: RENAL DISORDER
     Dosage: 5 MG, DAILY
     Route: 048
  4. GLUCOPHAGE [Concomitant]
     Indication: DIABETES MELLITUS
     Dosage: UNK DAILY
     Route: 048
  5. VIAGRA [Interacting]
     Dosage: 100 MG, UNK
     Route: 048
     Dates: start: 20120131, end: 20120201
  6. LASIX [Concomitant]
     Indication: FLUID RETENTION
     Dosage: 10 MG, DAILY
     Route: 048
  7. POTASSIUM [Concomitant]
     Dosage: UNK DAILY
  8. NEXIUM [Concomitant]
     Indication: GASTROOESOPHAGEAL REFLUX DISEASE
     Dosage: 40 MG, DAILY
     Route: 048

REACTIONS (2)
  - DRUG INTERACTION [None]
  - DRUG INEFFECTIVE [None]
